FAERS Safety Report 20895816 (Version 4)
Quarter: 2022Q3

REPORT INFORMATION
  Report Type: Spontaneous
  Country: US (occurrence: None)
  Receive Date: 20220531
  Receipt Date: 20220810
  Transmission Date: 20221027
  Serious: Yes (Hospitalization, Other)
  Sender: FDA-Public Use
  Company Number: 2022A198085

PATIENT
  Age: 26478 Day
  Sex: Male
  Weight: 122.5 kg

DRUGS (41)
  1. OMEPRAZOLE [Suspect]
     Active Substance: OMEPRAZOLE
     Indication: Gastrooesophageal reflux disease
     Route: 065
     Dates: start: 20100809, end: 20120521
  2. OMEPRAZOLE [Suspect]
     Active Substance: OMEPRAZOLE
     Indication: Gastrooesophageal reflux disease
     Route: 065
     Dates: start: 201008
  3. ESOMEPRAZOLE [Suspect]
     Active Substance: ESOMEPRAZOLE
     Indication: Gastrooesophageal reflux disease
     Route: 065
     Dates: start: 202201
  4. DEXILANT [Suspect]
     Active Substance: DEXLANSOPRAZOLE
     Indication: Gastrooesophageal reflux disease
     Route: 065
     Dates: start: 20120801, end: 202107
  5. DEXILANT [Suspect]
     Active Substance: DEXLANSOPRAZOLE
     Indication: Gastrooesophageal reflux disease
     Route: 065
     Dates: start: 20151021
  6. PANTOPRAZOLE [Suspect]
     Active Substance: PANTOPRAZOLE
     Indication: Gastrooesophageal reflux disease
     Route: 065
     Dates: start: 20100809, end: 20120521
  7. PANTOPRAZOLE [Suspect]
     Active Substance: PANTOPRAZOLE
     Indication: Gastrooesophageal reflux disease
     Route: 065
     Dates: start: 20151020
  8. PANTOPRAZOLE [Suspect]
     Active Substance: PANTOPRAZOLE
     Indication: Gastrooesophageal reflux disease
     Route: 065
     Dates: start: 20100809, end: 20120108
  9. PANTOPRAZOLE [Suspect]
     Active Substance: PANTOPRAZOLE
     Indication: Gastrooesophageal reflux disease
     Route: 065
     Dates: start: 20100809, end: 2022
  10. ROLAIDS [Concomitant]
     Active Substance: CALCIUM CARBONATE\MAGNESIUM HYDROXIDE
     Dates: start: 1990, end: 2009
  11. LISINOPRIL [Concomitant]
     Active Substance: LISINOPRIL
     Indication: Blood pressure measurement
     Dates: start: 20090626
  12. LISINOPRIL [Concomitant]
     Active Substance: LISINOPRIL
     Indication: Product communication issue
     Dates: start: 20090626
  13. METOPROLOL [Concomitant]
     Active Substance: METOPROLOL
     Indication: Blood pressure measurement
     Dates: start: 20090731
  14. PLAVIX [Concomitant]
     Active Substance: CLOPIDOGREL BISULFATE
     Indication: Blood pressure measurement
     Dates: start: 20090626
  15. SIMVASTATIN [Concomitant]
     Active Substance: SIMVASTATIN
     Indication: Blood pressure measurement
     Dates: start: 20090831
  16. FENOFIBRATE [Concomitant]
     Active Substance: FENOFIBRATE
     Indication: Blood pressure measurement
     Dates: start: 20100208
  17. AMOXICILLIN [Concomitant]
     Active Substance: AMOXICILLIN
     Indication: Blood pressure measurement
     Dates: start: 20110503, end: 20110513
  18. ACETAMINOPHEN [Concomitant]
     Active Substance: ACETAMINOPHEN
     Indication: Blood pressure measurement
     Dates: start: 2009
  19. NORCO [Concomitant]
     Active Substance: ACETAMINOPHEN\HYDROCODONE BITARTRATE
  20. TEMAZEPAM [Concomitant]
     Active Substance: TEMAZEPAM
  21. LOVENOX [Concomitant]
     Active Substance: ENOXAPARIN SODIUM
  22. ZOFRAN [Concomitant]
     Active Substance: ONDANSETRON HYDROCHLORIDE
  23. PEPCID [Concomitant]
     Active Substance: FAMOTIDINE
  24. GABAPENTIN [Concomitant]
     Active Substance: GABAPENTIN
  25. TAMSULOSIN [Concomitant]
     Active Substance: TAMSULOSIN
  26. ASPIRIN [Concomitant]
     Active Substance: ASPIRIN
  27. ZITHROMAX [Concomitant]
     Active Substance: AZITHROMYCIN DIHYDRATE
  28. ACETAMINOPHEN\HYDROCODONE BITARTRATE [Concomitant]
     Active Substance: ACETAMINOPHEN\HYDROCODONE BITARTRATE
  29. BETAMETHASONE [Concomitant]
     Active Substance: BETAMETHASONE
  30. PREDNISOLONE [Concomitant]
     Active Substance: PREDNISOLONE
     Dates: start: 20141202
  31. AMLODIPINE [Concomitant]
     Active Substance: AMLODIPINE BESYLATE
  32. ANUCORT [Concomitant]
  33. FLEXERIL [Concomitant]
     Active Substance: CYCLOBENZAPRINE HYDROCHLORIDE
  34. TRULICITY [Concomitant]
     Active Substance: DULAGLUTIDE
  35. GLIPIZIDE [Concomitant]
     Active Substance: GLIPIZIDE
  36. LEVOTHYROXINE [Concomitant]
     Active Substance: LEVOTHYROXINE
  37. NORTRIPTYLINE [Concomitant]
     Active Substance: NORTRIPTYLINE
  38. ROSUVASTATIN [Concomitant]
     Active Substance: ROSUVASTATIN
  39. VIAGRA [Concomitant]
     Active Substance: SILDENAFIL CITRATE
  40. TIZANIDINE [Concomitant]
     Active Substance: TIZANIDINE
  41. CIPRO [Concomitant]
     Active Substance: CIPROFLOXACIN HYDROCHLORIDE
     Dates: start: 20160111

REACTIONS (9)
  - Acute kidney injury [Not Recovered/Not Resolved]
  - Chronic kidney disease [Not Recovered/Not Resolved]
  - End stage renal disease [Unknown]
  - Metabolic acidosis [Unknown]
  - Renal failure [Unknown]
  - Renal hypertension [Unknown]
  - Renal injury [Unknown]
  - Tubulointerstitial nephritis [Unknown]
  - Gastrooesophageal reflux disease [Unknown]

NARRATIVE: CASE EVENT DATE: 20151020
